FAERS Safety Report 5156530-0 (Version None)
Quarter: 2006Q4

REPORT INFORMATION
  Report Type: 
  Country: None (occurrence: None)
  Receive Date: 20061115
  Receipt Date: 20061031
  Transmission Date: 20070319
  Serious: Yes (Other)
  Sender: FDA-Public Use
  Company Number: 2006BI013813

PATIENT
  Age: 48 Year
  Sex: Female
  Weight: 47.1741 kg

DRUGS (6)
  1. NATALIZUMAB [Suspect]
     Indication: MULTIPLE SCLEROSIS
     Dosage: 300 MG; QM; IV
     Route: 042
     Dates: start: 20050131, end: 20050131
  2. NATALIZUMAB [Suspect]
     Indication: MULTIPLE SCLEROSIS
     Dosage: 300 MG; QM; IV; SEE IMAGE
     Route: 042
     Dates: start: 20060829, end: 20060829
  3. NATALIZUMAB [Suspect]
     Indication: MULTIPLE SCLEROSIS
     Dosage: 300 MG; QM; IV; SEE IMAGE
     Route: 042
     Dates: start: 20060926, end: 20060926
  4. BONIVA [Concomitant]
  5. CALCIIUM [Concomitant]
  6. VITAMIN D [Concomitant]

REACTIONS (12)
  - ANAPHYLACTIC REACTION [None]
  - BRADYCARDIA [None]
  - CARDIO-RESPIRATORY ARREST [None]
  - DRUG HYPERSENSITIVITY [None]
  - FEELING ABNORMAL [None]
  - FEELING COLD [None]
  - INFUSION RELATED REACTION [None]
  - LOSS OF CONSCIOUSNESS [None]
  - MYDRIASIS [None]
  - NAUSEA [None]
  - PALLOR [None]
  - PUPIL FIXED [None]
